FAERS Safety Report 17252550 (Version 2)
Quarter: 2023Q2

REPORT INFORMATION
  Report Type: Report from Study
  Country: JP (occurrence: JP)
  Receive Date: 20200109
  Receipt Date: 20230622
  Transmission Date: 20230722
  Serious: Yes (Other)
  Sender: FDA-Public Use
  Company Number: JP-PFIZER INC-2020008025

PATIENT
  Age: 40 Year
  Sex: Female

DRUGS (1)
  1. SIROLIMUS [Suspect]
     Active Substance: SIROLIMUS
     Dosage: UNK

REACTIONS (4)
  - Pneumothorax [Unknown]
  - Stomatitis [Recovering/Resolving]
  - Hepatic function abnormal [Recovering/Resolving]
  - KL-6 increased [Recovering/Resolving]

NARRATIVE: CASE EVENT DATE: 20181001
